FAERS Safety Report 8589485-7 (Version None)
Quarter: 2012Q3

REPORT INFORMATION
  Report Type: 
  Country: None (occurrence: None)
  Receive Date: 20120813
  Receipt Date: 20120807
  Transmission Date: 20120928
  Serious: Yes (Other)
  Sender: FDA-Public Use
  Company Number: CA-ELI_LILLY_AND_COMPANY-CA201208002805

PATIENT
  Age: 78 Year
  Sex: Female

DRUGS (6)
  1. EXTRA STRENGTH TYLENOL [Concomitant]
  2. HYZAAR [Concomitant]
  3. CALCIUM [Concomitant]
  4. FORTEO [Suspect]
     Indication: OSTEOPOROSIS
     Dosage: 20 UG, UNK
     Route: 058
     Dates: start: 20110926
  5. VITAMIN D [Concomitant]
  6. COUMADIN [Concomitant]

REACTIONS (3)
  - ASTHENIA [None]
  - PULMONARY EMBOLISM [None]
  - BONE PAIN [None]
